FAERS Safety Report 17331230 (Version 1)
Quarter: 2020Q1

REPORT INFORMATION
  Report Type: Spontaneous
  Country: US (occurrence: US)
  Receive Date: 20200111
  Receipt Date: 20200111
  Transmission Date: 20200409
  Serious: No
  Sender: FDA-Public Use
  Company Number: None

PATIENT
  Age: 64 Year
  Sex: Male

DRUGS (1)
  1. CYCLOSPORINE, MODFIED [Suspect]
     Active Substance: CYCLOSPORINE
     Route: 048
     Dates: start: 20160101

REACTIONS (4)
  - Therapeutic product effect increased [None]
  - Myalgia [None]
  - Muscular weakness [None]
  - Potentiating drug interaction [None]

NARRATIVE: CASE EVENT DATE: 20191211
